FAERS Safety Report 17981667 (Version 1)
Quarter: 2020Q3

REPORT INFORMATION
  Report Type: Spontaneous
  Country: NL (occurrence: NL)
  Receive Date: 20200706
  Receipt Date: 20200706
  Transmission Date: 20201103
  Serious: Yes (Other)
  Sender: FDA-Public Use
  Company Number: NL-TEVA-2020-NL-1795549

PATIENT
  Age: 43 Year
  Sex: Female

DRUGS (20)
  1. D?CURA DRANK 25000IE [Concomitant]
     Dosage: W62AM, 1 DF,THERAPY END DATE : ASKU
     Dates: start: 20131025
  2. BACLOFEN 10MG [Concomitant]
     Active Substance: BACLOFEN
     Dosage: 4DD1, 40 MG ,THERAPY END DATE : ASKU
     Dates: start: 20100222
  3. CLINDAMYCINE 300MG [Suspect]
     Active Substance: CLINDAMYCIN HYDROCHLORIDE
     Indication: TOOTH DISORDER
     Dosage: 3DD2, 1800 MG,THERAPY END DATE : ASKU.
     Dates: start: 20160202
  4. PARACETAMOL 1000MG [Concomitant]
     Dosage: 2DD1, 2000 MG, THERAPY END DATE : ASKU
     Dates: start: 20091030
  5. AZITHROMYCINE 500 MG [Concomitant]
     Dosage: MWV1,1 DF,THERAPY END DATE : ASKU
     Dates: start: 20140226
  6. CLONAZEPAM 0,5MG [Concomitant]
     Dosage: 3DD2, 3 MG,THERAPY END DATE : ASKU
     Dates: start: 20090724
  7. EPIPEN 0,3MG=0,3ML [Concomitant]
     Dosage: Z1INJ,1 DF, THERAPY END DATE : ASKU
     Dates: start: 20131128
  8. PIROXICAM 20 MG [Concomitant]
     Dosage: 1DD1,20 MG,THERAPY END DATE : ASKU
     Dates: start: 20091215
  9. HYDROXOCOBALAMINE 1MG=2ML [Concomitant]
     Dosage: M21INJ.,1 DF, THERAPY END DATE : ASKU
     Dates: start: 20130422
  10. BUDESONIDE VERNEVEL 1MG=2ML [Concomitant]
     Dosage: 2.1AM, 2 DF, THERAPY END DATE : ASKU
     Dates: start: 20130827
  11. FOSTER 100/6MCG [Concomitant]
     Dosage: 2DD1,2 DF,THERAPY END DATE : ASKU
     Dates: start: 20131202
  12. PSYLLIUM VEZEL 3,25G [Concomitant]
     Dosage: 2DD1, 6 G,THERAPY END DATE : ASKU
     Dates: start: 20150302
  13. PREDNISOLON 5MG [Concomitant]
     Dosage: 1DD1, 5 MG,THERAPY END DATE : ASKU
     Dates: start: 20130912
  14. MAGNESIUMSULFAAT 500MG [Concomitant]
     Dosage: 2DD1,1000 MG,THERAPY END DATE : ASKU
     Dates: start: 20150205
  15. IPRAMOL 0,2/1MG/ML [Concomitant]
     Dosage: 4.1AM, 4 DF,THERAPY END DATE : ASKU
     Dates: start: 20130827
  16. SALBUTAMOL 100MCG [Concomitant]
     Dosage: 3Z1IH, 300 MCG,THERAPY END DATE : ASKU
     Dates: start: 20101123
  17. BETMIGA 50MG [Concomitant]
     Dosage: 1DD1,50 MG,THERAPY END DATE : ASKU
     Dates: start: 20150410
  18. ETHINYL/LEVONORG. 0,03/0,15 [Concomitant]
     Dosage: 1 DF,THERAPY END DATE : ASKU
     Dates: start: 20150703
  19. VESICARE 10MG [Concomitant]
     Dosage: 1DD1,10 MG ,THERAPY END DATE : ASKU
     Dates: start: 20111103
  20. ESOMEPRAZOL 40MG [Concomitant]
     Dosage: 2DD1,80 MG,THERAPY END DATE : ASKU
     Dates: start: 20110117

REACTIONS (3)
  - Rectal haemorrhage [Recovering/Resolving]
  - Wound [Recovering/Resolving]
  - Epistaxis [Recovering/Resolving]

NARRATIVE: CASE EVENT DATE: 20160211
